FAERS Safety Report 24785300 (Version 1)
Quarter: 2024Q4

REPORT INFORMATION
  Report Type: Spontaneous
  Country: JP (occurrence: JP)
  Receive Date: 20241228
  Receipt Date: 20241228
  Transmission Date: 20250114
  Serious: Yes (Other)
  Sender: ACCORD
  Company Number: JP-Accord-461520

PATIENT
  Age: 68 Year
  Sex: Male

DRUGS (1)
  1. TACROLIMUS [Suspect]
     Active Substance: TACROLIMUS
     Indication: Behcet^s syndrome
     Dosage: FOR MORE THAN 10 YEARS
     Route: 048

REACTIONS (1)
  - Anaplastic large cell lymphoma T- and null-cell types [Recovering/Resolving]
